FAERS Safety Report 8823476 (Version 1)
Quarter: 2012Q4

REPORT INFORMATION
  Report Type: 
  Country: DE (occurrence: DE)
  Receive Date: 20121003
  Receipt Date: 20121003
  Transmission Date: 20130627
  Serious: Yes (Other)
  Sender: FDA-Public Use
  Company Number: DE-GLAXOSMITHKLINE-D0076948A

PATIENT
  Sex: Female
  Weight: 67 kg

DRUGS (1)
  1. FORMIGRAN [Suspect]
     Indication: MIGRAINE
     Route: 048

REACTIONS (2)
  - Haematoma [Recovering/Resolving]
  - Haemarthrosis [Unknown]
